FAERS Safety Report 25561033 (Version 1)
Quarter: 2025Q3

REPORT INFORMATION
  Report Type: Spontaneous
  Country: US (occurrence: US)
  Receive Date: 20250715
  Receipt Date: 20250715
  Transmission Date: 20251020
  Serious: Yes (Hospitalization, Other)
  Sender: NOVO NORDISK
  Company Number: US-NOVOPROD-1427908

PATIENT
  Age: 51 Year
  Sex: Male
  Weight: 112.93 kg

DRUGS (4)
  1. OZEMPIC [Suspect]
     Active Substance: SEMAGLUTIDE
     Indication: Type 2 diabetes mellitus
     Dosage: 0.5 MG, QW
     Route: 058
     Dates: start: 202501, end: 202503
  2. OZEMPIC [Suspect]
     Active Substance: SEMAGLUTIDE
     Indication: Obesity
  3. OZEMPIC [Suspect]
     Active Substance: SEMAGLUTIDE
     Indication: Hyperlipidaemia
  4. OZEMPIC [Suspect]
     Active Substance: SEMAGLUTIDE
     Indication: Hypertension

REACTIONS (1)
  - Angioedema [Recovered/Resolved]

NARRATIVE: CASE EVENT DATE: 20250429
